FAERS Safety Report 8724152 (Version 2)
Quarter: 2013Q1

REPORT INFORMATION
  Report Type: Spontaneous
  Country: BR (occurrence: BR)
  Receive Date: 20120815
  Receipt Date: 20130201
  Transmission Date: 20140127
  Serious: Yes (Other)
  Sender: FDA-Public Use
  Company Number: PHHY2012BR069724

PATIENT
  Sex: Female
  Weight: 80 kg

DRUGS (6)
  1. DIOVAN AMLO [Suspect]
     Indication: HYPERTENSION
     Dosage: 1 DF, DAILY
     Route: 048
  2. DIOVAN HCT [Suspect]
     Indication: HYPERTENSION
     Dosage: 1 DF, (160 MG VASL AND 12.5 MG HCT) DAILY, IN THE MORNING
     Route: 048
  3. TORSILAX [Concomitant]
     Indication: ARTHRALGIA
     Dosage: 1 DF, PRN
     Route: 048
  4. OMETEC [Concomitant]
     Indication: HYPERTENSION
     Dosage: 1 DF, PER DAY
     Route: 048
  5. NAPRIX [Concomitant]
     Indication: HYPERTENSION
     Dosage: 2 DF, PER DAY
     Route: 048
  6. OMEPRAZOL ^ACYFABRIK^ [Concomitant]
     Dosage: 2 DF, DAILY
     Route: 048

REACTIONS (5)
  - Diabetes mellitus [Recovering/Resolving]
  - Hypertension [Recovering/Resolving]
  - Osteoarthritis [Not Recovered/Not Resolved]
  - Local swelling [Recovered/Resolved]
  - Diarrhoea [Unknown]
